FAERS Safety Report 7759446-6 (Version None)
Quarter: 2011Q3

REPORT INFORMATION
  Report Type: 
  Country: None (occurrence: None)
  Receive Date: 20110919
  Receipt Date: 20110905
  Transmission Date: 20111222
  Serious: Yes (Other)
  Sender: FDA-Public Use
  Company Number: US-ROCHE-801246

PATIENT
  Age: 47 Year
  Sex: Female

DRUGS (8)
  1. THALIDOMIDE [Interacting]
     Route: 065
     Dates: end: 20060701
  2. THALIDOMIDE [Interacting]
     Route: 065
     Dates: end: 20050901
  3. THALIDOMIDE [Interacting]
     Route: 065
     Dates: start: 20040901
  4. PREDNISONE [Concomitant]
  5. THALIDOMIDE [Interacting]
     Route: 065
     Dates: start: 20060801, end: 20071214
  6. MYCOPHENOLATE MOFETIL [Suspect]
     Route: 065
  7. THALIDOMIDE [Interacting]
     Route: 065
     Dates: start: 20080201
  8. IMMUNE GLOBULIN INTRAVENOUS (HUMAN) [Concomitant]
     Dosage: 2 DOSES OF 1 G/KG

REACTIONS (1)
  - DRUG INTERACTION [None]
